FAERS Safety Report 21256552 (Version 1)
Quarter: 2022Q3

REPORT INFORMATION
  Report Type: Spontaneous
  Country: CA (occurrence: CA)
  Receive Date: 20220826
  Receipt Date: 20220826
  Transmission Date: 20221027
  Serious: Yes (Other)
  Sender: FDA-Public Use
  Company Number: None

PATIENT
  Age: 71 Year
  Sex: Female

DRUGS (4)
  1. METHOTREXATE [Suspect]
     Active Substance: METHOTREXATE
     Indication: Rheumatoid arthritis
     Dosage: 1 EVERY 1 WEEKS
     Route: 058
  2. CLOPIDOGREL BISULFATE [Concomitant]
     Active Substance: CLOPIDOGREL BISULFATE
  3. LEFLUNOMIDE [Concomitant]
     Active Substance: LEFLUNOMIDE
  4. RAMIPRIL [Concomitant]
     Active Substance: RAMIPRIL

REACTIONS (2)
  - Coronary arterial stent insertion [Unknown]
  - Colonoscopy [Unknown]
